FAERS Safety Report 21057160 (Version 3)
Quarter: 2022Q4

REPORT INFORMATION
  Report Type: Spontaneous
  Country: KR (occurrence: KR)
  Receive Date: 20220708
  Receipt Date: 20221210
  Transmission Date: 20230112
  Serious: Yes (Other)
  Sender: FDA-Public Use
  Company Number: KR-BRISTOL-MYERS SQUIBB COMPANY-2022-067874

PATIENT

DRUGS (3)
  1. NIVOLUMAB [Suspect]
     Active Substance: NIVOLUMAB
     Indication: Renal cell carcinoma
     Dosage: 1ST TO 4TH DOSE
     Route: 065
     Dates: start: 20210101, end: 20210326
  2. NIVOLUMAB [Suspect]
     Active Substance: NIVOLUMAB
     Dosage: 34 TH DOSE
     Route: 065
     Dates: start: 20220522
  3. IPILIMUMAB [Suspect]
     Active Substance: IPILIMUMAB
     Indication: Renal cell carcinoma
     Dosage: 1ST TO 4TH DOSE
     Route: 065
     Dates: start: 20210101, end: 20210326

REACTIONS (3)
  - Hemiplegia [Recovering/Resolving]
  - Metastases to central nervous system [Recovering/Resolving]
  - Tic [Unknown]
